FAERS Safety Report 4706093-6 (Version None)
Quarter: 2005Q2

REPORT INFORMATION
  Report Type: 
  Country: None (occurrence: None)
  Receive Date: 20050627
  Receipt Date: 20050330
  Transmission Date: 20051028
  Serious: Yes (Hospitalization)
  Sender: FDA-Public Use
  Company Number: US-JNJFOC-20050105040

PATIENT
  Age: 40 Year
  Sex: Female
  Weight: 61.2356 kg

DRUGS (9)
  1. DURAGESIC-100 [Suspect]
     Indication: PAIN
     Dosage: SEE IMAGE
     Route: 062
     Dates: start: 20040501, end: 20050117
  2. DURAGESIC-100 [Suspect]
     Indication: PAIN
     Dosage: SEE IMAGE
     Route: 062
     Dates: start: 20050118
  3. . [Concomitant]
  4. EFFEXOR (VENLAFAXINE HYDROCHLORIDE) CAPSULES [Concomitant]
  5. PROPANOL (PROPRANOLOL) TABLETS [Concomitant]
  6. ROBAXIN (METHOCARBAMOL) TABLETS [Concomitant]
  7. ZYVOX (LINEZOLID) TABLETS [Concomitant]
  8. ZYRTEC [Concomitant]
  9. PERGOLIDE (PERGOLIDE) TABLETS [Concomitant]

REACTIONS (5)
  - DIARRHOEA [None]
  - DIZZINESS [None]
  - HYPOVENTILATION [None]
  - SYNCOPE [None]
  - WEIGHT DECREASED [None]
